FAERS Safety Report 5414859-2 (Version None)
Quarter: 2007Q3

REPORT INFORMATION
  Report Type: 
  Country: None (occurrence: None)
  Receive Date: 20070815
  Receipt Date: 20070804
  Transmission Date: 20080115
  Serious: Yes (Other)
  Sender: FDA-Public Use
  Company Number: PHHO2007MX13049

PATIENT
  Age: 45 Year
  Sex: Female

DRUGS (4)
  1. ZELNORM [Suspect]
     Dosage: 6 MG, UNK
     Route: 048
  2. ARAVA [Concomitant]
     Indication: ARTHRITIS
  3. CALCORT [Concomitant]
     Indication: PAIN IN EXTREMITY
  4. PIRIFUR [Concomitant]

REACTIONS (5)
  - CHEST PAIN [None]
  - DYSPNOEA [None]
  - GASTROINTESTINAL DISORDER [None]
  - MELAENA [None]
  - ORAL INTAKE REDUCED [None]
